FAERS Safety Report 13793196 (Version 1)
Quarter: 2017Q3

REPORT INFORMATION
  Report Type: Report from Study
  Country: ES (occurrence: ES)
  Receive Date: 20170726
  Receipt Date: 20170726
  Transmission Date: 20171127
  Serious: Yes (Death)
  Sender: FDA-Public Use
  Company Number: ES-B.I. PHARMACEUTICALS,INC./RIDGEFIELD-2017-BI-041783

PATIENT

DRUGS (1)
  1. PRAXBIND [Suspect]
     Active Substance: IDARUCIZUMAB
     Indication: HAEMORRHAGE INTRACRANIAL
     Route: 065

REACTIONS (1)
  - Haemorrhage intracranial [Fatal]

NARRATIVE: CASE EVENT DATE: 201612
